FAERS Safety Report 8126450-8 (Version None)
Quarter: 2012Q1

REPORT INFORMATION
  Report Type: 
  Country: None (occurrence: None)
  Receive Date: 20120209
  Receipt Date: 20120202
  Transmission Date: 20120608
  Serious: Yes (Other)
  Sender: FDA-Public Use
  Company Number: US-ASTRAZENECA-2012SE07195

PATIENT
  Age: 70 Year
  Sex: Female

DRUGS (2)
  1. BRILINTA [Suspect]
     Route: 048
  2. OTHER MEDICATIONS [Concomitant]

REACTIONS (2)
  - ARRHYTHMIA [None]
  - ATRIOVENTRICULAR BLOCK [None]
